FAERS Safety Report 8513025-1 (Version None)
Quarter: 2012Q3

REPORT INFORMATION
  Report Type: 
  Country: None (occurrence: None)
  Receive Date: 20120716
  Receipt Date: 20120712
  Transmission Date: 20120928
  Serious: No
  Sender: FDA-Public Use
  Company Number: US-B.I. PHARMACEUTICALS,INC./RIDGEFIELD-2012-BP-15617BP

PATIENT
  Sex: Female

DRUGS (4)
  1. TOPROL-XL [Concomitant]
     Indication: CARDIAC DISORDER
     Dosage: 25 MG
     Route: 048
     Dates: start: 20020101
  2. PRADAXA [Suspect]
     Indication: ATRIAL FIBRILLATION
     Dosage: 300 MG
     Route: 048
     Dates: start: 20120701
  3. DOXAZOSIN MESYLATE [Concomitant]
     Indication: CARDIAC DISORDER
     Dosage: 2 MG
     Route: 048
     Dates: start: 20020101
  4. ALTACE [Concomitant]
     Indication: CARDIAC DISORDER
     Dosage: 10 MG
     Route: 048
     Dates: start: 20020101

REACTIONS (6)
  - DIARRHOEA [None]
  - EPISTAXIS [None]
  - FLATULENCE [None]
  - DYSPEPSIA [None]
  - PAIN [None]
  - OEDEMA PERIPHERAL [None]
